FAERS Safety Report 9904785 (Version 1)
Quarter: 2014Q1

REPORT INFORMATION
  Report Type: Report from Study
  Country: US (occurrence: US)
  Receive Date: 20140218
  Receipt Date: 20140218
  Transmission Date: 20141002
  Serious: Yes (Hospitalization)
  Sender: FDA-Public Use
  Company Number: US-PFIZER INC-2014043621

PATIENT
  Age: 63 Year
  Sex: Male
  Weight: 84.6 kg

DRUGS (13)
  1. DOXORUBICIN HCL [Suspect]
     Indication: SARCOMA METASTATIC
     Dosage: UNK
     Route: 040
     Dates: start: 20120606
  2. DOXORUBICIN HCL [Suspect]
     Dosage: DAY 1, 58 MG (75 MG/M2)
     Route: 040
     Dates: start: 20120725
  3. AMITRIPTYLINE [Concomitant]
     Dosage: UNK
     Dates: start: 20120731
  4. EFEXOR XR [Concomitant]
     Dosage: UNK
     Dates: start: 20120711
  5. NEURONTIN [Concomitant]
     Dosage: UNK
     Dates: start: 20120815
  6. ATIVAN [Concomitant]
     Dosage: UNK
     Dates: start: 20120613
  7. FERROUS SULFATE [Concomitant]
     Dosage: UNK
     Dates: start: 20120815
  8. NYSTATIN [Concomitant]
     Dosage: UNK
     Dates: start: 20120731
  9. ZOFRAN [Concomitant]
     Dosage: UNK
     Dates: start: 20120701
  10. OXYCODONE [Concomitant]
     Dosage: UNK
     Dates: start: 20120302
  11. COMPAZINE [Concomitant]
     Dosage: UNK
     Dates: start: 20120718
  12. DAKIN^S SOLUTION [Concomitant]
     Dosage: UNK
     Dates: start: 20120731
  13. FENTANYL [Concomitant]

REACTIONS (1)
  - Wound infection [Recovered/Resolved]
